FAERS Safety Report 17266932 (Version 3)
Quarter: 2020Q4

REPORT INFORMATION
  Report Type: Spontaneous
  Country: US (occurrence: US)
  Receive Date: 20200114
  Receipt Date: 20201020
  Transmission Date: 20210113
  Serious: No
  Sender: FDA-Public Use
  Company Number: US-JNJFOC-20200115763

PATIENT
  Age: 28 Year
  Sex: Female
  Weight: 51.76 kg

DRUGS (2)
  1. INVEGA [Suspect]
     Active Substance: PALIPERIDONE
     Indication: POST CONCUSSION SYNDROME
     Route: 048
     Dates: start: 201912
  2. INVEGA [Suspect]
     Active Substance: PALIPERIDONE
     Indication: PSYCHOTIC DISORDER

REACTIONS (4)
  - Wrong technique in product usage process [Unknown]
  - Therapeutic product effect decreased [Unknown]
  - Off label use [Unknown]
  - Product use in unapproved indication [Unknown]

NARRATIVE: CASE EVENT DATE: 201912
